FAERS Safety Report 5555040-6 (Version None)
Quarter: 2007Q4

REPORT INFORMATION
  Report Type: 
  Country: None (occurrence: None)
  Receive Date: 20071213
  Receipt Date: 20071203
  Transmission Date: 20080405
  Serious: Yes (Death, Hospitalization)
  Sender: FDA-Public Use
  Company Number: US-KINGPHARMUSA00001-K200700718

PATIENT

DRUGS (1)
  1. COLY-MYCIN M [Suspect]
     Indication: PSEUDOMONAS INFECTION
     Dosage: 75 MG, BID
     Dates: start: 20070401

REACTIONS (5)
  - ACUTE RESPIRATORY DISTRESS SYNDROME [None]
  - ACUTE RESPIRATORY FAILURE [None]
  - MULTI-ORGAN FAILURE [None]
  - PRODUCTIVE COUGH [None]
  - RESPIRATORY DISTRESS [None]
